FAERS Safety Report 6014641-1 (Version None)
Quarter: 2008Q4

REPORT INFORMATION
  Report Type: 
  Country: None (occurrence: None)
  Receive Date: 20081219
  Receipt Date: 20081007
  Transmission Date: 20090506
  Serious: No
  Sender: FDA-Public Use
  Company Number: A0750820A

PATIENT
  Age: 67 Year
  Sex: Male

DRUGS (11)
  1. AVODART [Suspect]
     Indication: BENIGN PROSTATIC HYPERPLASIA
     Dosage: .5MG PER DAY
     Route: 048
     Dates: start: 20080930, end: 20081004
  2. FLOMAX [Concomitant]
  3. FENOFIBRATE [Concomitant]
  4. PRAVASTATIN [Concomitant]
  5. METOPROLOL TARTRATE [Concomitant]
  6. LOVAZA [Concomitant]
  7. PLAVIX [Concomitant]
  8. HYDROCHLOROTHIAZIDE [Concomitant]
  9. BUPROPION HCL [Concomitant]
  10. XANAX [Concomitant]
  11. TYLENOL (CAPLET) [Concomitant]

REACTIONS (7)
  - ABDOMINAL PAIN UPPER [None]
  - CHEST PAIN [None]
  - CHOKING SENSATION [None]
  - DIZZINESS [None]
  - DYSPHAGIA [None]
  - DYSURIA [None]
  - HYPERTENSION [None]
